FAERS Safety Report 22375825 (Version 1)
Quarter: 2023Q2

REPORT INFORMATION
  Report Type: Spontaneous
  Country: US (occurrence: US)
  Receive Date: 20230527
  Receipt Date: 20230527
  Transmission Date: 20230721
  Serious: No
  Sender: FDA-Public Use
  Company Number: US-PERRIGO-22US013496

PATIENT
  Age: 34 Year
  Sex: Male
  Weight: 110.66 kg

DRUGS (1)
  1. MINOXIDIL [Suspect]
     Active Substance: MINOXIDIL
     Indication: Alopecia
     Dosage: 1/2 CAPFUL, BID
     Route: 061
     Dates: start: 2022, end: 20221003

REACTIONS (4)
  - Application site ulcer [Recovering/Resolving]
  - Application site scab [Recovering/Resolving]
  - Application site swelling [Recovering/Resolving]
  - Application site pain [Recovered/Resolved]

NARRATIVE: CASE EVENT DATE: 20220901
